FAERS Safety Report 15193932 (Version 5)
Quarter: 2018Q3

REPORT INFORMATION
  Report Type: Report from Study
  Country: ES (occurrence: ES)
  Receive Date: 20180725
  Receipt Date: 20180926
  Transmission Date: 20181010
  Serious: Yes (Disabling, Other)
  Sender: FDA-Public Use
  Company Number: PHHY2017ES105330

PATIENT
  Age: 10 Year
  Sex: Male
  Weight: 35.6 kg

DRUGS (3)
  1. GLIVEC [Suspect]
     Active Substance: IMATINIB MESYLATE
     Indication: PHILADELPHIA CHROMOSOME POSITIVE
     Dosage: 300 OT, UNK
     Route: 048
     Dates: start: 20170509, end: 20171022
  2. GLIVEC [Suspect]
     Active Substance: IMATINIB MESYLATE
     Indication: ACUTE LYMPHOCYTIC LEUKAEMIA
  3. VINCRISTINE [Concomitant]
     Active Substance: VINCRISTINE
     Indication: LEUKAEMIA
     Dosage: 2 MG, UNK
     Route: 065
     Dates: start: 20170809, end: 20170814

REACTIONS (29)
  - Nausea [Unknown]
  - Pyrexia [Unknown]
  - Skin infection [Unknown]
  - Pain [Unknown]
  - Hypomagnesaemia [Unknown]
  - Abdominal pain [Unknown]
  - Thrombocytopenia [Recovered/Resolved]
  - Engraftment syndrome [Recovered/Resolved]
  - Eyelid oedema [Unknown]
  - Decreased appetite [Unknown]
  - Oral candidiasis [Unknown]
  - Weight decreased [Unknown]
  - Mucosal inflammation [Unknown]
  - Anaemia [Unknown]
  - Aphthous ulcer [Unknown]
  - Pneumonia viral [Recovered/Resolved]
  - Cytomegalovirus test positive [Unknown]
  - Anxiety [Unknown]
  - Insomnia [Unknown]
  - Polyneuropathy [Recovered/Resolved]
  - Pharyngotonsillitis [Recovered/Resolved]
  - Odynophagia [Unknown]
  - Neutropenia [Recovered/Resolved]
  - Blood immunoglobulin G decreased [Unknown]
  - Palatal oedema [Unknown]
  - Headache [Unknown]
  - Gastrointestinal motility disorder [Unknown]
  - Enterococcal infection [Recovered/Resolved]
  - Vomiting [Unknown]

NARRATIVE: CASE EVENT DATE: 20170518
